FAERS Safety Report 18280238 (Version 3)
Quarter: 2020Q4

REPORT INFORMATION
  Report Type: Spontaneous
  Country: IN (occurrence: IN)
  Receive Date: 20200918
  Receipt Date: 20201029
  Transmission Date: 20210113
  Serious: Yes (Other)
  Sender: FDA-Public Use
  Company Number: IN-CIPLA LTD.-2020IN06503

PATIENT

DRUGS (6)
  1. FORACORT [Suspect]
     Active Substance: BUDESONIDE\FORMOTEROL FUMARATE
     Indication: ASTHMA
     Dosage: 2 PUFFS, TID (3 TIMES A DAY)
     Dates: start: 202005, end: 20200615
  2. FORACORT 200 [Suspect]
     Active Substance: BUDESONIDE\FORMOTEROL FUMARATE
     Indication: ASTHMA
     Dosage: 2 PUFFS, TID (3 TIMES A DAY)
     Route: 065
     Dates: start: 20200210
  3. FORACORT 200 [Suspect]
     Active Substance: BUDESONIDE\FORMOTEROL FUMARATE
     Dosage: 2 PUFFS, BID (MORNING AND NIGHT)
     Route: 065
     Dates: start: 20200210
  4. MAXIFLO [FLUTICASONE/FORMOTEROL] [Concomitant]
     Active Substance: FLUTICASONE\FORMOTEROL
     Indication: ASTHMA
     Dosage: UNK
  5. MAXIFLO [FLUTICASONE/FORMOTEROL] [Suspect]
     Active Substance: FLUTICASONE\FORMOTEROL
     Indication: ASTHMA
     Dosage: UNK
     Dates: end: 202005
  6. LEVOLIN (LEVOSALBUTAMOL) [Suspect]
     Active Substance: LEVALBUTEROL
     Indication: ASTHMA
     Dosage: 2 PUFFS, PRN (WHENEVER REQUIRED/ AS PER REQUIREMENT)
     Dates: start: 20200210

REACTIONS (9)
  - Dyspnoea [Unknown]
  - Device difficult to use [Unknown]
  - Incorrect dose administered by device [Recovered/Resolved]
  - Product container seal issue [Unknown]
  - Drug ineffective [Not Recovered/Not Resolved]
  - Foreign body in mouth [Recovered/Resolved]
  - Device delivery system issue [Unknown]
  - Mouth ulceration [Recovered/Resolved]
  - Suspected counterfeit product [Unknown]

NARRATIVE: CASE EVENT DATE: 2020
